FAERS Safety Report 20378584 (Version 1)
Quarter: 2022Q1

REPORT INFORMATION
  Report Type: Spontaneous
  Country: US (occurrence: US)
  Receive Date: 20220126
  Receipt Date: 20220126
  Transmission Date: 20220423
  Serious: Yes (Other)
  Sender: FDA-Public Use
  Company Number: US-SLATE RUN PHARMACEUTICALS-22US000869

PATIENT

DRUGS (2)
  1. VANCOMYCIN HYDROCHLORIDE [Suspect]
     Active Substance: VANCOMYCIN HYDROCHLORIDE
     Indication: Purulent pericarditis
     Dosage: AUC/MIC DOSING AT 1.5 GRAM, Q 12 HR WITH AN INITIAL AUC OF 415
  2. VANCOMYCIN HYDROCHLORIDE [Suspect]
     Active Substance: VANCOMYCIN HYDROCHLORIDE
     Dosage: 3 GRAM LOADING DOSE

REACTIONS (1)
  - Treatment failure [Recovered/Resolved]
